FAERS Safety Report 8879156 (Version 1)
Quarter: 2012Q4

REPORT INFORMATION
  Report Type: Spontaneous
  Country: US (occurrence: None)
  Receive Date: 20121026
  Receipt Date: 20121026
  Transmission Date: 20130627
  Serious: Yes (Life-Threatening)
  Sender: FDA-Public Use
  Company Number: None

PATIENT
  Age: 72 Year
  Sex: Female
  Weight: 65.77 kg

DRUGS (14)
  1. HYDROCODONE + ACETAMINOPHEN [Suspect]
     Indication: PAIN
     Dosage: 1 tablet  every 4-6- hours  po
     Route: 048
     Dates: start: 20121022, end: 20121024
  2. HYDROCODON/ACETAMINOPHN 10-325 WATKINS [Suspect]
  3. EFFEXOR XR [Concomitant]
  4. LORAZEPAM [Concomitant]
  5. LUMIGAN [Concomitant]
  6. ALPHAGAN [Concomitant]
  7. VITAMIN D [Concomitant]
  8. VITAMIN B12 [Concomitant]
  9. PROVENTIL INHALER [Concomitant]
  10. CLOBETASOL CREAM [Concomitant]
  11. NEOSPORIN OINTMENT [Concomitant]
  12. ANBESOL LIQUID [Concomitant]
  13. OPCON A [Concomitant]
  14. SYSTANE [Concomitant]

REACTIONS (5)
  - Insomnia [None]
  - Dyspnoea [None]
  - Product quality issue [None]
  - Chest discomfort [None]
  - Product substitution issue [None]
